FAERS Safety Report 4823558-7 (Version None)
Quarter: 2005Q4

REPORT INFORMATION
  Report Type: 
  Country: None (occurrence: None)
  Receive Date: 20051104
  Receipt Date: 20051026
  Transmission Date: 20060501
  Serious: Yes (Hospitalization)
  Sender: FDA-Public Use
  Company Number: 2005-134002-NL

PATIENT
  Age: 75 Year
  Sex: Male

DRUGS (2)
  1. TICE BCG [Suspect]
     Indication: NEOPLASM MALIGNANT
     Dosage: INTRAVESICAL
     Route: 043
     Dates: end: 20041120
  2. ENALAPRIL [Concomitant]

REACTIONS (1)
  - IIIRD NERVE PARALYSIS [None]
